FAERS Safety Report 7502790-8 (Version None)
Quarter: 2011Q2

REPORT INFORMATION
  Report Type: 
  Country: None (occurrence: None)
  Receive Date: 20110524
  Receipt Date: 20110524
  Transmission Date: 20111010
  Serious: Yes (Hospitalization)
  Sender: FDA-Public Use
  Company Number: None

PATIENT
  Sex: Female
  Weight: 88.18 kg

DRUGS (3)
  1. TAXOL [Suspect]
     Dosage: 348 MG
     Dates: end: 20110419
  2. TOPOTECAN [Suspect]
     Dosage: 4.5 MG
     Dates: end: 20110421
  3. LOVENOX [Concomitant]

REACTIONS (9)
  - DYSURIA [None]
  - DEVICE OCCLUSION [None]
  - FLANK PAIN [None]
  - HYDRONEPHROSIS [None]
  - DEEP VEIN THROMBOSIS [None]
  - HAEMATURIA [None]
  - BLOOD CREATININE INCREASED [None]
  - URINE OUTPUT DECREASED [None]
  - MEDICAL DEVICE SITE REACTION [None]
